FAERS Safety Report 25568831 (Version 2)
Quarter: 2025Q3

REPORT INFORMATION
  Report Type: Spontaneous
  Country: US (occurrence: US)
  Receive Date: 20250716
  Receipt Date: 20250718
  Transmission Date: 20251020
  Serious: No
  Sender: NOVO NORDISK
  Company Number: US-NOVOPROD-1270423

PATIENT
  Sex: Female

DRUGS (1)
  1. WEGOVY [Suspect]
     Active Substance: SEMAGLUTIDE
     Indication: Weight control
     Dosage: 1 MG, QD
     Route: 058
     Dates: start: 20240721

REACTIONS (4)
  - Increased appetite [Not Recovered/Not Resolved]
  - Weight loss poor [Not Recovered/Not Resolved]
  - Drug ineffective [Not Recovered/Not Resolved]
  - Product storage error [Unknown]
